FAERS Safety Report 16029419 (Version 1)
Quarter: 2019Q1

REPORT INFORMATION
  Report Type: Spontaneous
  Country: US (occurrence: US)
  Receive Date: 20190304
  Receipt Date: 20190304
  Transmission Date: 20190418
  Serious: No
  Sender: FDA-Public Use
  Company Number: US-IMPAX LABORATORIES, LLC-2018-IPXL-01493

PATIENT
  Age: 74 Year
  Sex: Male
  Weight: 70 kg

DRUGS (2)
  1. RYTARY [Suspect]
     Active Substance: CARBIDOPA\LEVODOPA
     Indication: PARKINSON^S DISEASE
     Dosage: 23.75/95 MG, ONE CAPSULE, THREE TIMES A DAY
     Route: 048
     Dates: start: 201801, end: 201804
  2. RYTARY [Suspect]
     Active Substance: CARBIDOPA\LEVODOPA
     Dosage: 23.75/95 MG ONE CAPSULE QD (EVERY MORNING)
     Route: 048
     Dates: start: 201804

REACTIONS (4)
  - Fall [Recovered/Resolved]
  - Balance disorder [Recovered/Resolved]
  - Speech disorder [Recovered/Resolved]
  - Confusional state [Recovered/Resolved]

NARRATIVE: CASE EVENT DATE: 2018
